FAERS Safety Report 5317216-2 (Version None)
Quarter: 2007Q2

REPORT INFORMATION
  Report Type: 
  Country: None (occurrence: None)
  Receive Date: 20070504
  Receipt Date: 20070411
  Transmission Date: 20071010
  Serious: Yes (Other)
  Sender: FDA-Public Use
  Company Number: GB-PFIZER INC-2007029705

PATIENT
  Age: 18 Year
  Sex: Male
  Weight: 64 kg

DRUGS (2)
  1. PHENYTOIN INJECTION [Suspect]
     Indication: STATUS EPILEPTICUS
     Route: 042
     Dates: start: 20070220, end: 20070101
  2. PHENYTOIN [Suspect]
     Indication: STATUS EPILEPTICUS
     Route: 048
     Dates: start: 20070101, end: 20070318

REACTIONS (6)
  - HYPERSENSITIVITY [None]
  - LIVER FUNCTION TEST ABNORMAL [None]
  - NEUTROPENIA [None]
  - PYREXIA [None]
  - RASH [None]
  - VOMITING [None]
